FAERS Safety Report 18854640 (Version 1)
Quarter: 2021Q1

REPORT INFORMATION
  Report Type: Other
  Country: CN (occurrence: CN)
  Receive Date: 20210206
  Receipt Date: 20210206
  Transmission Date: 20210420
  Serious: Yes (Other)
  Sender: FDA-Public Use
  Company Number: CN-ROCHE-2109201

PATIENT
  Age: 74 Year
  Sex: Male
  Weight: 53 kg

DRUGS (2)
  1. AVASTIN [Suspect]
     Active Substance: BEVACIZUMAB
     Indication: RECTAL CANCER
     Route: 041
  2. AVASTIN [Suspect]
     Active Substance: BEVACIZUMAB
     Indication: RECTAL CANCER
     Route: 041
     Dates: start: 20170507, end: 20180730

REACTIONS (5)
  - Incision site impaired healing [Unknown]
  - Nasopharyngitis [Unknown]
  - Hernia [Unknown]
  - Diabetes mellitus [Unknown]
  - Lung operation [Unknown]

NARRATIVE: CASE EVENT DATE: 201808
